FAERS Safety Report 18028402 (Version 1)
Quarter: 2020Q3

REPORT INFORMATION
  Report Type: Spontaneous
  Country: DE (occurrence: DE)
  Receive Date: 20200715
  Receipt Date: 20200715
  Transmission Date: 20201103
  Serious: Yes (Other)
  Sender: FDA-Public Use
  Company Number: DE-MYLANLABS-2020M1064154

PATIENT
  Age: 80 Year
  Sex: Female

DRUGS (20)
  1. CLOBETASOL PROPIONATE. [Suspect]
     Active Substance: CLOBETASOL PROPIONATE
     Indication: NEURODERMATITIS
     Dosage: 0.5 MILLIGRAM PER GRAM
     Route: 061
     Dates: start: 2015, end: 2015
  2. RITUXIMAB. [Concomitant]
     Active Substance: RITUXIMAB
     Dosage: UNK
  3. CLOBETASOL PROPIONATE. [Suspect]
     Active Substance: CLOBETASOL PROPIONATE
     Dosage: 0.5 MILLIGRAM PER GRAM
     Route: 061
     Dates: start: 2018, end: 2018
  4. MOMETASONE FUROATE. [Suspect]
     Active Substance: MOMETASONE FUROATE
     Indication: NEURODERMATITIS
     Dosage: 1 MILLIGRAM PER GRAM
     Dates: start: 2017, end: 2018
  5. PAROXETINE. [Suspect]
     Active Substance: PAROXETINE
     Indication: NEURODERMATITIS
     Dosage: 20 MILLIGRAM, QD
     Dates: start: 201708, end: 201806
  6. PIMECROLIMUS. [Suspect]
     Active Substance: PIMECROLIMUS
     Indication: NEURODERMATITIS
     Dosage: 10 MILLIGRAM PER GRAM
     Route: 061
     Dates: start: 2017, end: 2018
  7. BETAMETHASONE VALERATE. [Suspect]
     Active Substance: BETAMETHASONE VALERATE
     Indication: NEURODERMATITIS
     Dosage: 1.2 MILLIGRAM PER GRAM
     Dates: start: 2015, end: 2016
  8. CYCLOSPORINE. [Suspect]
     Active Substance: CYCLOSPORINE
     Dosage: 100 MILLIGRAM
     Dates: start: 201807, end: 201808
  9. BENDAMUSTINE [Concomitant]
     Active Substance: BENDAMUSTINE
     Dosage: UNK
  10. BETAMETHASONE VALERATE. [Suspect]
     Active Substance: BETAMETHASONE VALERATE
     Dosage: UNK
     Dates: start: 2016, end: 2016
  11. CLOBETASOL PROPIONATE. [Suspect]
     Active Substance: CLOBETASOL PROPIONATE
     Indication: DERMATITIS ATOPIC
     Dosage: 0.5 MILLIGRAM PER GRAM
     Route: 061
     Dates: start: 2016, end: 2016
  12. BETAMETHASONE VALERATE. [Suspect]
     Active Substance: BETAMETHASONE VALERATE
     Dosage: 1.2 MILLIGRAM PER GRAM
     Route: 061
     Dates: start: 2017, end: 2018
  13. GABAPENTIN. [Suspect]
     Active Substance: GABAPENTIN
     Indication: NEURODERMATITIS
     Dosage: 900 MILLIGRAM, QD
     Dates: start: 201711, end: 201807
  14. METHOTREXATE. [Suspect]
     Active Substance: METHOTREXATE
     Indication: NEURODERMATITIS
     Dosage: 10 MILLIGRAM, QW
     Dates: start: 2018
  15. MIRTAZAPINE. [Suspect]
     Active Substance: MIRTAZAPINE
     Indication: NEURODERMATITIS
     Dosage: 15 MILLIGRAM, QD
     Dates: start: 201604, end: 201806
  16. PREDNICARBATE. [Suspect]
     Active Substance: PREDNICARBATE
     Indication: NEURODERMATITIS
     Dosage: 2.5 MILLIGRAM PER GRAM
     Route: 061
     Dates: start: 2016, end: 2017
  17. TACROLIMUS. [Suspect]
     Active Substance: TACROLIMUS
     Indication: NEURODERMATITIS
     Dosage: 1 MILLIGRAM PER GRAM
     Route: 061
     Dates: start: 2017, end: 2018
  18. CYCLOSPORINE. [Suspect]
     Active Substance: CYCLOSPORINE
     Indication: NEURODERMATITIS
     Dosage: 300 MILLIGRAM, QD
     Dates: start: 201604, end: 201806
  19. PREDNISOLONE. [Suspect]
     Active Substance: PREDNISOLONE
     Indication: NEURODERMATITIS
     Dosage: 40 MILLIGRAM, QD
     Route: 048
     Dates: start: 201804, end: 201804
  20. DESLORATADINE. [Concomitant]
     Active Substance: DESLORATADINE
     Indication: NEURODERMATITIS
     Dosage: UNK
     Dates: start: 2018, end: 2019

REACTIONS (2)
  - Intraductal papillary mucinous neoplasm [Not Recovered/Not Resolved]
  - Off label use [Unknown]

NARRATIVE: CASE EVENT DATE: 2018
